FAERS Safety Report 10693681 (Version 2)
Quarter: 2015Q1

REPORT INFORMATION
  Report Type: Report from Study
  Country: US (occurrence: US)
  Receive Date: 20150106
  Receipt Date: 20150216
  Transmission Date: 20150721
  Serious: Yes (Other)
  Sender: FDA-Public Use
  Company Number: US-BAYER-2015-000997

PATIENT
  Age: 38 Year
  Sex: Male

DRUGS (3)
  1. STIVARGA [Suspect]
     Active Substance: REGORAFENIB
     Indication: COLON CANCER
     Dosage: DAILY DOSE 80 MG
     Route: 048
     Dates: start: 20141231, end: 20141231
  2. STIVARGA [Suspect]
     Active Substance: REGORAFENIB
     Indication: COLON CANCER
     Dosage: DAILY DOSE 160 MG
     Route: 048
     Dates: start: 20141229, end: 20141230
  3. STIVARGA [Suspect]
     Active Substance: REGORAFENIB
     Indication: COLON CANCER
     Dosage: DAILY DOSE 160 MG
     Route: 048
     Dates: start: 20141201, end: 20141208

REACTIONS (11)
  - Colon cancer [Not Recovered/Not Resolved]
  - Pain [Recovered/Resolved]
  - Muscle tightness [Recovered/Resolved]
  - Back pain [Recovered/Resolved]
  - Neuralgia [Recovered/Resolved]
  - Tension [Recovered/Resolved]
  - Rash generalised [Recovered/Resolved]
  - Hepatic pain [Recovered/Resolved]
  - Viral infection [Recovered/Resolved]
  - Musculoskeletal stiffness [Recovered/Resolved]
  - Headache [Recovered/Resolved]

NARRATIVE: CASE EVENT DATE: 20141201
